FAERS Safety Report 5965698-5 (Version None)
Quarter: 2008Q4

REPORT INFORMATION
  Report Type: 
  Country: None (occurrence: None)
  Receive Date: 20081125
  Receipt Date: 20081117
  Transmission Date: 20090506
  Serious: Yes (Death, Hospitalization)
  Sender: FDA-Public Use
  Company Number: A0757966A

PATIENT
  Age: 65 Year
  Sex: Male
  Weight: 90.9 kg

DRUGS (6)
  1. AVANDIA [Suspect]
     Dosage: 8MG PER DAY
     Route: 048
     Dates: start: 20060327, end: 20061025
  2. METFORMIN HCL [Concomitant]
  3. HYDROCHLOROTHIAZIDE [Concomitant]
  4. GLUCOVANCE [Concomitant]
  5. TOPROL-XL [Concomitant]
  6. ONE-A-DAY [Concomitant]

REACTIONS (1)
  - MYOCARDIAL INFARCTION [None]
